FAERS Safety Report 7919686-X (Version None)
Quarter: 2011Q4

REPORT INFORMATION
  Report Type: 
  Country: None (occurrence: None)
  Receive Date: 20111115
  Receipt Date: 20111101
  Transmission Date: 20120403
  Serious: Yes (Other)
  Sender: FDA-Public Use
  Company Number: KAD201110-000040

PATIENT
  Age: 64 Year
  Sex: Female
  Weight: 76.6579 kg

DRUGS (8)
  1. MORPHINE [Concomitant]
  2. PEGASYS [Suspect]
     Indication: HEPATITIS C
     Dosage: 180 MCG ONCE A WEEK
     Dates: start: 20110907, end: 20111011
  3. METAXALONE [Concomitant]
  4. LIDOCAINE [Concomitant]
  5. PROZAC [Concomitant]
  6. RIBAVIRIN [Suspect]
     Indication: HEPATITIS C
     Dosage: 3 CAPS IN AM, 2 IN PM, PER ORAL
     Route: 048
     Dates: start: 20110907, end: 20111016
  7. INCIVEK [Suspect]
     Indication: HEPATITIS C
     Dosage: 375 MG TID, PER ORAL
     Dates: start: 20110907, end: 20111016
  8. NEXIUM [Concomitant]

REACTIONS (29)
  - PHOTOPHOBIA [None]
  - FUNGAL INFECTION [None]
  - ALOPECIA [None]
  - SJOGREN'S SYNDROME [None]
  - CONDITION AGGRAVATED [None]
  - HEADACHE [None]
  - PRURITUS GENERALISED [None]
  - GINGIVAL BLEEDING [None]
  - ANAL PRURITUS [None]
  - TREMOR [None]
  - VERTIGO [None]
  - VOMITING [None]
  - DYSPNOEA [None]
  - NECK PAIN [None]
  - DRY EYE [None]
  - NAUSEA [None]
  - SINUS HEADACHE [None]
  - CHEST PAIN [None]
  - CONFUSIONAL STATE [None]
  - MIGRAINE [None]
  - TINNITUS [None]
  - DIZZINESS [None]
  - DECREASED APPETITE [None]
  - BLISTER [None]
  - GAIT DISTURBANCE [None]
  - PAIN [None]
  - BREAST TENDERNESS [None]
  - RASH [None]
  - DRY MOUTH [None]
